FAERS Safety Report 4888713-9 (Version None)
Quarter: 2005Q4

REPORT INFORMATION
  Report Type: 
  Country: None (occurrence: None)
  Receive Date: 20051215
  Receipt Date: 20050516
  Transmission Date: 20060501
  Serious: Yes (Other)
  Sender: FDA-Public Use
  Company Number: 2005076309

PATIENT
  Sex: Female

DRUGS (11)
  1. BEXTRA [Suspect]
     Indication: ARTHRITIS
     Dosage: 20 MG (20 MG, 1 IN 1 D), ORAL
     Route: 048
     Dates: start: 20040401
  2. CELEBREX [Suspect]
     Indication: ARTHRITIS
     Dosage: 2 IN 1 D, ORAL
     Route: 048
     Dates: end: 20040401
  3. MOBIC [Suspect]
     Indication: ARTHRITIS
     Dosage: 7.5 MG (7.5 MG, 1 IN 1 D), ORAL
     Route: 048
     Dates: start: 20050101, end: 20050101
  4. SYNTHROID [Concomitant]
  5. PROTONIX [Concomitant]
  6. COZAAR [Concomitant]
  7. FOLIC ACID [Concomitant]
  8. WELLBUTRIN [Concomitant]
  9. CYCLOBENZAPRINE HCL [Concomitant]
  10. ALLOPURINOL [Concomitant]
  11. NITROFURANTOIN [Concomitant]

REACTIONS (7)
  - BODY HEIGHT DECREASED [None]
  - CARDIAC FAILURE CONGESTIVE [None]
  - DYSPNOEA [None]
  - ELECTROCARDIOGRAM ABNORMAL [None]
  - HYPERTENSION [None]
  - MYOCARDIAL INFARCTION [None]
  - PALPITATIONS [None]
